FAERS Safety Report 17026147 (Version 1)
Quarter: 2019Q4

REPORT INFORMATION
  Report Type: Spontaneous
  Country: US (occurrence: US)
  Receive Date: 20191009
  Receipt Date: 20191009
  Transmission Date: 20200122
  Serious: No
  Sender: FDA-Public Use
  Company Number: None

PATIENT
  Age: 53 Year
  Sex: Female

DRUGS (1)
  1. OCTREOTIDE INJ 1000MCG [Suspect]
     Active Substance: OCTREOTIDE
     Route: 058
     Dates: start: 20180201

REACTIONS (1)
  - Product storage error [None]

NARRATIVE: CASE EVENT DATE: 20191009
